FAERS Safety Report 5346044-7 (Version None)
Quarter: 2007Q2

REPORT INFORMATION
  Report Type: 
  Country: None (occurrence: None)
  Receive Date: 20070605
  Receipt Date: 20070601
  Transmission Date: 20071010
  Serious: Yes (Death, Hospitalization)
  Sender: FDA-Public Use
  Company Number: US-ROCHE-497585

PATIENT
  Age: 87 Year
  Sex: Male
  Weight: 54.4 kg

DRUGS (5)
  1. BONIVA [Suspect]
     Indication: OSTEOPOROSIS
     Route: 048
     Dates: start: 20060101, end: 20070102
  2. ISOSORBIDE DINITRATE [Concomitant]
  3. DIGOXIN [Concomitant]
  4. COUMADIN [Concomitant]
  5. ASPIRIN [Concomitant]

REACTIONS (4)
  - CARDIAC ARREST [None]
  - FALL [None]
  - HIP FRACTURE [None]
  - PNEUMONIA [None]
